FAERS Safety Report 14288361 (Version 1)
Quarter: 2017Q4

REPORT INFORMATION
  Report Type: Spontaneous
  Country: DE (occurrence: DE)
  Receive Date: 20171214
  Receipt Date: 20171214
  Transmission Date: 20180321
  Serious: Yes (Other)
  Sender: FDA-Public Use
  Company Number: DE-TELIGENT, INC-IGIL20170551

PATIENT
  Age: 43 Year
  Sex: Male
  Weight: 73 kg

DRUGS (21)
  1. MYLEPSINUM [Suspect]
     Active Substance: PRIMIDONE
     Indication: GENERALISED TONIC-CLONIC SEIZURE
     Dosage: UNKNOWN
     Route: 065
  2. MYLEPSINUM [Suspect]
     Active Substance: PRIMIDONE
     Dosage: 250 MG
     Route: 065
     Dates: start: 199211, end: 199303
  3. GABAPENTIN. [Suspect]
     Active Substance: GABAPENTIN
     Indication: EPILEPSY
     Dosage: UNKNOWN
     Route: 065
  4. VALPROAT [Concomitant]
     Active Substance: VALPROATE SODIUM
     Indication: PRODUCT USED FOR UNKNOWN INDICATION
     Dosage: UNKNOWN
     Route: 065
     Dates: start: 199101, end: 199111
  5. RANITIDINE HYDROCHLORIDE. [Suspect]
     Active Substance: RANITIDINE HYDROCHLORIDE
     Indication: PRODUCT USED FOR UNKNOWN INDICATION
     Dosage: UNKNOWN
     Route: 065
  6. TEGRETOL [Suspect]
     Active Substance: CARBAMAZEPINE
     Dosage: 400 MG
     Route: 048
     Dates: start: 199101
  7. PHENYTOINE [Concomitant]
     Active Substance: PHENYTOIN
     Indication: PRODUCT USED FOR UNKNOWN INDICATION
     Dosage: UNKNOWN
     Route: 065
     Dates: start: 199201, end: 199205
  8. TEGRETOL [Suspect]
     Active Substance: CARBAMAZEPINE
     Indication: PRODUCT USED FOR UNKNOWN INDICATION
     Dosage: 400 MG
     Route: 048
  9. CARBAMAZEPINE. [Suspect]
     Active Substance: CARBAMAZEPINE
     Dosage: 1100 - 1200 MG
     Route: 065
     Dates: start: 198609, end: 199001
  10. MYLEPSINUM [Suspect]
     Active Substance: PRIMIDONE
     Dosage: 250-312.5 MG
     Route: 065
     Dates: start: 199307, end: 199310
  11. MYLEPSINUM [Suspect]
     Active Substance: PRIMIDONE
     Dosage: 250-1000 MG
     Route: 065
     Dates: start: 1981
  12. VALPROATE SODIUM. [Concomitant]
     Active Substance: VALPROATE SODIUM
     Indication: PRODUCT USED FOR UNKNOWN INDICATION
     Dosage: UNKNOWN
     Route: 065
     Dates: start: 198401, end: 198406
  13. TEGRETOL [Suspect]
     Active Substance: CARBAMAZEPINE
     Dosage: 400 MG
     Route: 048
  14. TEGRETOL [Suspect]
     Active Substance: CARBAMAZEPINE
     Dosage: 400 MG
     Route: 048
     Dates: start: 199101
  15. MYLEPSINUM [Suspect]
     Active Substance: PRIMIDONE
     Indication: PARTIAL SEIZURES
     Dosage: 250 MG
     Route: 065
     Dates: start: 199310, end: 199405
  16. MYLEPSINUM [Suspect]
     Active Substance: PRIMIDONE
     Dosage: 250 MG
     Route: 065
     Dates: start: 199405, end: 199812
  17. VIGABATRIN. [Concomitant]
     Active Substance: VIGABATRIN
     Indication: PRODUCT USED FOR UNKNOWN INDICATION
     Dosage: UNKNOWN
     Route: 065
     Dates: start: 198211, end: 199303
  18. CARBAMAZEPINE. [Suspect]
     Active Substance: CARBAMAZEPINE
     Indication: EPILEPSY
     Dosage: 600-1400 MG
     Route: 065
     Dates: start: 198407, end: 198605
  19. CARBAMAZEPINE. [Suspect]
     Active Substance: CARBAMAZEPINE
     Dosage: 1200 - 1400 MG
     Route: 065
     Dates: start: 198607, end: 198608
  20. MYLEPSINUM [Suspect]
     Active Substance: PRIMIDONE
     Dosage: 312-500 MG
     Route: 065
     Dates: start: 199101, end: 199111
  21. MYLEPSINUM [Suspect]
     Active Substance: PRIMIDONE
     Dosage: 250 MG
     Route: 048
     Dates: start: 199303, end: 199307

REACTIONS (24)
  - Cervicobrachial syndrome [Unknown]
  - Mental disorder [Unknown]
  - Visual field defect [Unknown]
  - Decreased appetite [Unknown]
  - Gastric ulcer [Recovered/Resolved]
  - Nausea [Unknown]
  - Aggression [Unknown]
  - Oral pain [Unknown]
  - Drug interaction [Unknown]
  - Asthenia [Unknown]
  - Tooth disorder [Not Recovered/Not Resolved]
  - Musculoskeletal pain [Unknown]
  - Fatigue [Unknown]
  - Gingival disorder [Not Recovered/Not Resolved]
  - Jaw disorder [Unknown]
  - Condition aggravated [Not Recovered/Not Resolved]
  - Epilepsy [Unknown]
  - Musculoskeletal stiffness [Unknown]
  - Open angle glaucoma [Recovering/Resolving]
  - Pain in extremity [Unknown]
  - Sciatica [Unknown]
  - Bone metabolism disorder [Not Recovered/Not Resolved]
  - Faeces soft [Unknown]
  - Gingival atrophy [Unknown]

NARRATIVE: CASE EVENT DATE: 1999
